FAERS Safety Report 6370902-8 (Version None)
Quarter: 2009Q3

REPORT INFORMATION
  Report Type: 
  Country: None (occurrence: None)
  Receive Date: 20090923
  Receipt Date: 20070317
  Transmission Date: 20100115
  Serious: No
  Sender: FDA-Public Use
  Company Number: US-ASTRAZENECA-2006UW22694

PATIENT
  Sex: Female
  Weight: 129.3 kg

DRUGS (20)
  1. SEROQUEL [Suspect]
     Indication: DEPRESSION
     Route: 048
     Dates: start: 20050901, end: 20060109
  2. SEROQUEL [Suspect]
     Indication: SCHIZOPHRENIA
     Route: 048
     Dates: start: 20050901, end: 20060109
  3. SEROQUEL [Suspect]
     Route: 048
     Dates: start: 20050101
  4. SEROQUEL [Suspect]
     Route: 048
     Dates: start: 20050101
  5. RISPERDAL [Concomitant]
  6. STELAZINE [Concomitant]
  7. THORAZINE [Concomitant]
  8. TRILAFON [Concomitant]
  9. ZYPREXA [Concomitant]
  10. PREMARIN [Concomitant]
     Route: 065
  11. ATENOLOL [Concomitant]
     Route: 065
  12. DIOVAN HCT [Concomitant]
     Route: 065
  13. PAXIL [Concomitant]
     Route: 065
  14. NEXIUM [Concomitant]
  15. NORVASC [Concomitant]
  16. BACLOFEN [Concomitant]
  17. TRAMADOL HCL [Concomitant]
  18. AVANDIA [Concomitant]
  19. FUROSEMIDE [Concomitant]
  20. ASPIRIN [Concomitant]

REACTIONS (1)
  - DIABETES MELLITUS [None]
